FAERS Safety Report 17539150 (Version 6)
Quarter: 2022Q2

REPORT INFORMATION
  Report Type: Spontaneous
  Country: US (occurrence: US)
  Receive Date: 20200313
  Receipt Date: 20220517
  Transmission Date: 20220721
  Serious: No
  Sender: FDA-Public Use
  Company Number: US-PFIZER INC-2020110727

PATIENT
  Age: 61 Year
  Sex: Male
  Weight: 107 kg

DRUGS (14)
  1. XELJANZ XR [Suspect]
     Active Substance: TOFACITINIB CITRATE
     Indication: Rheumatoid arthritis
     Dosage: 11 MG, DAILY
     Route: 048
     Dates: start: 201903
  2. XELJANZ XR [Suspect]
     Active Substance: TOFACITINIB CITRATE
     Dosage: 22 MG, DAILY
     Route: 048
     Dates: start: 201903
  3. SIMVASTATIN [Concomitant]
     Active Substance: SIMVASTATIN
     Dosage: 10 MG, UNK
  4. PLAQUENIL [Concomitant]
     Active Substance: HYDROXYCHLOROQUINE SULFATE
     Dosage: 200 MG, UNK
  5. INSULIN NOS [Concomitant]
     Active Substance: INSULIN NOS
     Dosage: UNK
  6. METFORMIN HYDROCHLORIDE [Concomitant]
     Active Substance: METFORMIN HYDROCHLORIDE
     Dosage: UNK
  7. CYCLOBENZAPRINE HYDROCHLORIDE [Concomitant]
     Active Substance: CYCLOBENZAPRINE HYDROCHLORIDE
     Dosage: UNK
  8. AMLODIPINE BESILATE DOCPHARMA [Concomitant]
     Dosage: UNK
  9. LISINOPRIL [Concomitant]
     Active Substance: LISINOPRIL
     Dosage: UNK
  10. NOVOLOG [Concomitant]
     Active Substance: INSULIN ASPART
     Dosage: UNK
  11. VITAMIN D3 [Concomitant]
     Active Substance: CHOLECALCIFEROL
     Dosage: UNK
  12. LEVEMIR [Concomitant]
     Active Substance: INSULIN DETEMIR
     Dosage: UNK
  13. VITAMINS [Concomitant]
     Active Substance: VITAMINS
     Dosage: UNK
  14. FOLIC ACID [Concomitant]
     Active Substance: FOLIC ACID
     Dosage: UNK

REACTIONS (7)
  - Pain [Unknown]
  - Upper respiratory tract infection [Unknown]
  - COVID-19 [Not Recovered/Not Resolved]
  - Illness [Not Recovered/Not Resolved]
  - Intentional product misuse [Unknown]
  - Gastrointestinal disorder [Recovered/Resolved]
  - Cough [Recovered/Resolved]
